FAERS Safety Report 4483408-8 (Version None)
Quarter: 2004Q4

REPORT INFORMATION
  Report Type: 
  Country: None (occurrence: None)
  Receive Date: 20041020
  Receipt Date: 20041006
  Transmission Date: 20050328
  Serious: Yes (Life-Threatening)
  Sender: FDA-Public Use
  Company Number: GBS041015723

PATIENT
  Age: 74 Year
  Sex: Female
  Weight: 60 kg

DRUGS (4)
  1. XIGRIS [Suspect]
     Indication: SEPSIS
     Dosage: 140 MG
     Dates: start: 20040922, end: 20040926
  2. RANITIDINE [Concomitant]
  3. CEFUROXIME [Concomitant]
  4. METRONIDAZOLE [Concomitant]

REACTIONS (1)
  - THROMBOCYTOPENIA [None]
